FAERS Safety Report 24275251 (Version 2)
Quarter: 2024Q3

REPORT INFORMATION
  Report Type: Spontaneous
  Country: US (occurrence: US)
  Receive Date: 20240903
  Receipt Date: 20240925
  Transmission Date: 20241017
  Serious: Yes (Other)
  Sender: PFIZER
  Company Number: US-PFIZER INC-202400244889

PATIENT
  Age: 75 Year
  Sex: Female
  Weight: 47.63 kg

DRUGS (11)
  1. IBRANCE [Suspect]
     Active Substance: PALBOCICLIB
     Indication: Antioestrogen therapy
     Dosage: 2 DF, DAILY
  2. IBRANCE [Suspect]
     Active Substance: PALBOCICLIB
     Indication: Breast cancer metastatic
     Dosage: 125MG ONCE A DAY BY MOUTH FOR 3 WEEKS THEN OFF FOR A WEEK SO HER WHITE BLOOD CELL CAN COME BACK/21 D
     Route: 048
     Dates: start: 202401
  3. IBRANCE [Suspect]
     Active Substance: PALBOCICLIB
     Dosage: UNK
     Dates: start: 20240820
  4. ANASTROZOLE [Concomitant]
     Active Substance: ANASTROZOLE
     Indication: Antioestrogen therapy
     Dosage: 1 MG
     Dates: start: 202401
  5. FLUCONAZOLE [Concomitant]
     Active Substance: FLUCONAZOLE
     Indication: Rash
     Dosage: 100 MG, 1X/DAY
  6. TART CHERRY [Concomitant]
     Indication: Bone pain
     Dosage: 2400 MG, DAILY (1200MG 2 PILLS A DAY)
  7. HERBALS\TURMERIC [Concomitant]
     Active Substance: HERBALS\TURMERIC
     Indication: Bone pain
     Dosage: 500 MG, 1X/DAY
  8. GLYCOPYRROLATE [Concomitant]
     Active Substance: GLYCOPYRROLATE
     Indication: Hyperhidrosis
     Dosage: 1MG 1.5 ONCE A DAY
  9. LOSARTAN [Concomitant]
     Active Substance: LOSARTAN\LOSARTAN POTASSIUM
     Indication: Hypertension
     Dosage: 50 MG, 1X/DAY
  10. STOOL SOFTENER (DOCUSATE) [Concomitant]
     Active Substance: DOCUSATE
     Indication: Constipation
     Dosage: 2 DF, DAILY
  11. ALLER ZYR [Concomitant]
     Indication: Hypersensitivity
     Dosage: 1 DF, DAILY

REACTIONS (6)
  - Foot operation [Unknown]
  - Sleep apnoea syndrome [Unknown]
  - Nephrolithiasis [Unknown]
  - Gout [Recovering/Resolving]
  - Tendonitis [Unknown]
  - Pain [Unknown]

NARRATIVE: CASE EVENT DATE: 20230101
